FAERS Safety Report 6646656-4 (Version None)
Quarter: 2010Q1

REPORT INFORMATION
  Report Type: 
  Country: None (occurrence: None)
  Receive Date: 20100323
  Receipt Date: 20100312
  Transmission Date: 20100710
  Serious: Yes (Hospitalization)
  Sender: FDA-Public Use
  Company Number: AR-JNJFOC-20091207507

PATIENT
  Sex: Female
  Weight: 83 kg

DRUGS (14)
  1. GOLIMUMAB [Suspect]
     Indication: RHEUMATOID ARTHRITIS
     Route: 058
  2. GOLIMUMAB [Suspect]
     Route: 058
  3. GOLIMUMAB [Suspect]
     Route: 058
  4. GOLIMUMAB [Suspect]
     Route: 058
  5. GOLIMUMAB [Suspect]
     Route: 058
  6. PLACEBO [Suspect]
     Indication: RHEUMATOID ARTHRITIS
     Route: 048
  7. METICORTEN [Concomitant]
     Route: 048
  8. ENALAPRIL MALEATE [Concomitant]
     Route: 048
  9. PREDNISONE [Concomitant]
     Route: 048
  10. DICLOFENAC [Concomitant]
     Route: 048
  11. BILETAN FORTE [Concomitant]
     Route: 048
  12. METHOTREXATE [Concomitant]
     Route: 048
  13. METHOTREXATE [Concomitant]
     Route: 048
  14. METHOTREXATE [Concomitant]
     Route: 048

REACTIONS (1)
  - HERPES ZOSTER [None]
